FAERS Safety Report 11406611 (Version 1)
Quarter: 2015Q3

REPORT INFORMATION
  Report Type: Spontaneous
  Country: US (occurrence: US)
  Receive Date: 20150821
  Receipt Date: 20150821
  Transmission Date: 20151125
  Serious: No
  Sender: FDA-Public Use
  Company Number: US-CELGENEUS-USA-2015070743

PATIENT
  Age: 22 Year
  Sex: Female

DRUGS (4)
  1. LIDEX [Concomitant]
     Active Substance: FLUOCINONIDE
     Indication: PSORIASIS
     Route: 065
  2. KETOCONAZOLE. [Concomitant]
     Active Substance: KETOCONAZOLE
     Indication: PSORIASIS
     Route: 065
  3. PROBIOTIC [Concomitant]
     Active Substance: PROBIOTICS NOS
     Indication: PSORIASIS
     Route: 065
  4. OTEZLA [Suspect]
     Active Substance: APREMILAST
     Indication: PSORIASIS
     Dosage: 60 MILLIGRAM
     Route: 048
     Dates: start: 20150105

REACTIONS (2)
  - Weight decreased [Not Recovered/Not Resolved]
  - Gastrointestinal disorder [Not Recovered/Not Resolved]

NARRATIVE: CASE EVENT DATE: 20150112
